FAERS Safety Report 21285351 (Version 1)
Quarter: 2022Q3

REPORT INFORMATION
  Report Type: Spontaneous
  Country: US (occurrence: None)
  Receive Date: 20220901
  Receipt Date: 20220901
  Transmission Date: 20221027
  Serious: No
  Sender: FDA-Public Use
  Company Number: None

PATIENT

DRUGS (2)
  1. SORBITOL [Suspect]
     Active Substance: SORBITOL
  2. ORACIT [Suspect]
     Active Substance: CITRIC ACID, 1-STEARYL ESTER\SODIUM CITRATE

REACTIONS (1)
  - Product packaging confusion [None]
